FAERS Safety Report 7214026-6 (Version None)
Quarter: 2011Q1

REPORT INFORMATION
  Report Type: 
  Country: None (occurrence: None)
  Receive Date: 20110107
  Receipt Date: 20101228
  Transmission Date: 20110831
  Serious: Yes (Hospitalization)
  Sender: FDA-Public Use
  Company Number: US-BIOGENIDEC-2010BI043483

PATIENT
  Sex: Male

DRUGS (1)
  1. AVONEX [Suspect]
     Indication: MULTIPLE SCLEROSIS
     Route: 030
     Dates: start: 20031120

REACTIONS (9)
  - WHITE BLOOD CELL COUNT DECREASED [None]
  - OEDEMA PERIPHERAL [None]
  - JOINT INJURY [None]
  - BLOOD COUNT ABNORMAL [None]
  - CELLULITIS [None]
  - INFECTION [None]
  - BURSITIS [None]
  - ASTHENIA [None]
  - INFLUENZA LIKE ILLNESS [None]
